FAERS Safety Report 5415699-0 (Version None)
Quarter: 2007Q3

REPORT INFORMATION
  Report Type: 
  Country: None (occurrence: None)
  Receive Date: 20070731
  Receipt Date: 20070531
  Transmission Date: 20080115
  Serious: No
  Sender: FDA-Public Use
  Company Number: US200706000241

PATIENT
  Age: 67 Year
  Sex: Female

DRUGS (4)
  1. BYETTA [Suspect]
     Dosage: 5 UG, 2/D, SUBCUTANEOUS
     Route: 058
     Dates: start: 20070530
  2. GLIMEPIRIDE [Concomitant]
  3. ACTOS [Concomitant]
  4. AVANDIA [Concomitant]

REACTIONS (4)
  - HEADACHE [None]
  - INJECTION SITE BRUISING [None]
  - INJECTION SITE COLDNESS [None]
  - INJECTION SITE HAEMORRHAGE [None]
